FAERS Safety Report 15145944 (Version 2)
Quarter: 2019Q4

REPORT INFORMATION
  Report Type: Spontaneous
  Country: GB (occurrence: GB)
  Receive Date: 20180714
  Receipt Date: 20191121
  Transmission Date: 20200122
  Serious: Yes (Other)
  Sender: FDA-Public Use
  Company Number: GB-TEVA-2018-GB-925666

PATIENT
  Age: 38 Year
  Sex: Female
  Weight: 90 kg

DRUGS (12)
  1. ACTAVIS GROUP SERTRALINE [Suspect]
     Active Substance: SERTRALINE HYDROCHLORIDE
     Dosage: STARTED AT 50MG FOR 5-6 WEEKS, THEN INCREASED TO 100MG.
     Route: 048
     Dates: start: 20180515
  2. MAROL PROLONGED RELEASE [Concomitant]
     Active Substance: TRAMADOL HYDROCHLORIDE
     Route: 065
  3. LANSOPRAZOLE. [Concomitant]
     Active Substance: LANSOPRAZOLE
     Route: 065
  4. ACTAVIS GROUP SERTRALINE [Suspect]
     Active Substance: SERTRALINE HYDROCHLORIDE
     Indication: DEPRESSION
     Dosage: STARTED AT 50MG FOR 5-6 WEEKS, THEN INCREASED TO 100MG.
     Route: 048
     Dates: end: 20180524
  5. TOPIRAMATE. [Concomitant]
     Active Substance: TOPIRAMATE
     Route: 065
  6. AMITRIPTYLINE [Concomitant]
     Active Substance: AMITRIPTYLINE
     Route: 065
  7. BUSCOPAN [Concomitant]
     Active Substance: BUTYLSCOPOLAMINE BROMIDE
     Route: 065
  8. ACCORD UK TRAMADOL [Concomitant]
     Route: 065
  9. COLECALCIFEROL [Concomitant]
     Active Substance: CHOLECALCIFEROL
     Route: 065
  10. DULCOEASE [Concomitant]
     Active Substance: DOCUSATE SODIUM
     Route: 065
  11. PARACETAMOL [Concomitant]
     Active Substance: ACETAMINOPHEN
     Route: 065
  12. FORCEVAL [Concomitant]
     Active Substance: FOLIC ACID\IRON\MINERALS\VITAMINS
     Route: 065

REACTIONS (4)
  - Lip exfoliation [Recovering/Resolving]
  - Lip swelling [Recovering/Resolving]
  - Lip ulceration [Recovering/Resolving]
  - Lip haemorrhage [Recovering/Resolving]

NARRATIVE: CASE EVENT DATE: 20180402
